FAERS Safety Report 17986784 (Version 2)
Quarter: 2020Q3

REPORT INFORMATION
  Report Type: Spontaneous
  Country: FR (occurrence: FR)
  Receive Date: 20200706
  Receipt Date: 20200713
  Transmission Date: 20201103
  Serious: Yes (Death, Other)
  Sender: FDA-Public Use
  Company Number: FR-BRISTOL-MYERS SQUIBB COMPANY-BMS-2020-053533

PATIENT
  Age: 66 Year
  Sex: Male
  Weight: 81.5 kg

DRUGS (3)
  1. HYDREA [Suspect]
     Active Substance: HYDROXYUREA
     Indication: ACUTE MYELOID LEUKAEMIA
     Dosage: UNK
     Route: 048
     Dates: start: 202005, end: 20200615
  2. DUPIXENT [Suspect]
     Active Substance: DUPILUMAB
     Indication: DERMATOSIS
     Dosage: UNK
     Route: 058
     Dates: start: 202005
  3. VIDAZA [Suspect]
     Active Substance: AZACITIDINE
     Indication: ACUTE MYELOID LEUKAEMIA
     Dosage: 146 MILLIGRAM, 1 DAY
     Route: 058
     Dates: start: 20200610, end: 20200615

REACTIONS (2)
  - Cerebral haemorrhage [Fatal]
  - Intentional product use issue [Unknown]

NARRATIVE: CASE EVENT DATE: 20200615
